FAERS Safety Report 7839974-5 (Version None)
Quarter: 2011Q4

REPORT INFORMATION
  Report Type: 
  Country: None (occurrence: None)
  Receive Date: 20111025
  Receipt Date: 20111014
  Transmission Date: 20120403
  Serious: No
  Sender: FDA-Public Use
  Company Number: US-BIOGENIDEC-2011BI039364

PATIENT
  Age: 55 Year
  Sex: Female

DRUGS (2)
  1. AVONEX [Suspect]
     Indication: MULTIPLE SCLEROSIS
     Route: 030
     Dates: start: 20110823
  2. IBURPOFEN [Concomitant]
     Indication: PREMEDICATION
     Route: 048
     Dates: start: 20110823

REACTIONS (4)
  - MENTAL DISORDER [None]
  - VOMITING [None]
  - INFLUENZA LIKE ILLNESS [None]
  - PYREXIA [None]
